FAERS Safety Report 11291894 (Version 1)
Quarter: 2015Q3

REPORT INFORMATION
  Report Type: Spontaneous
  Country: US (occurrence: None)
  Receive Date: 20150721
  Receipt Date: 20150721
  Transmission Date: 20151125
  Serious: Yes (Hospitalization)
  Sender: FDA-Public Use
  Company Number: None

PATIENT
  Age: 26 Day
  Sex: Male
  Weight: 74.84 kg

DRUGS (6)
  1. DEPAKOTE [Concomitant]
     Active Substance: DIVALPROEX SODIUM
  2. SEROQUEL [Concomitant]
     Active Substance: QUETIAPINE FUMARATE
  3. ABILIFY [Suspect]
     Active Substance: ARIPIPRAZOLE
     Indication: BIPOLAR DISORDER
     Dates: start: 20150225, end: 20150315
  4. ZINC [Concomitant]
     Active Substance: ZINC\ZINC CHLORIDE
  5. BIOTIN [Concomitant]
     Active Substance: BIOTIN
  6. SELENIUM [Concomitant]
     Active Substance: SELENIUM

REACTIONS (7)
  - Dysarthria [None]
  - Insomnia [None]
  - Energy increased [None]
  - Fear [None]
  - Paranoia [None]
  - Akathisia [None]
  - VIIth nerve paralysis [None]

NARRATIVE: CASE EVENT DATE: 20150225
